APPROVED DRUG PRODUCT: ONDANSETRON HYDROCHLORIDE PRESERVATIVE FREE
Active Ingredient: ONDANSETRON HYDROCHLORIDE
Strength: EQ 2MG BASE/ML
Dosage Form/Route: INJECTABLE;INJECTION
Application: A078287 | Product #001 | TE Code: AP
Applicant: BAXTER HEALTHCARE CORP
Approved: Feb 22, 2013 | RLD: No | RS: Yes | Type: RX